FAERS Safety Report 6284116-3 (Version None)
Quarter: 2009Q3

REPORT INFORMATION
  Report Type: 
  Country: None (occurrence: None)
  Receive Date: 20090722
  Receipt Date: 20090713
  Transmission Date: 20100115
  Serious: Yes (Hospitalization)
  Sender: FDA-Public Use
  Company Number: ATO-05-0074

PATIENT
  Age: 57 Year
  Sex: Female
  Weight: 78 kg

DRUGS (3)
  1. TRISENOX [Suspect]
     Indication: MYELODYSPLASTIC SYNDROME
     Dosage: (19  MG), INTRAVENOUS
     Route: 042
     Dates: start: 20050228, end: 20050303
  2. TRISENOX [Suspect]
     Indication: MYELODYSPLASTIC SYNDROME
     Dosage: (19  MG), INTRAVENOUS
     Route: 042
     Dates: start: 20050314, end: 20050515
  3. THALOMID [Suspect]
     Indication: MYELODYSPLASTIC SYNDROME
     Dosage: 100 MG; 100 MG; ORAL (100 MG)
     Route: 048
     Dates: start: 20050228, end: 20050303

REACTIONS (2)
  - BRONCHITIS [None]
  - PNEUMONIA [None]
